FAERS Safety Report 9575028 (Version 1)
Quarter: 2013Q4

REPORT INFORMATION
  Report Type: Report from Study
  Country: US (occurrence: US)
  Receive Date: 20131001
  Receipt Date: 20131001
  Transmission Date: 20140711
  Serious: Yes (Other)
  Sender: FDA-Public Use
  Company Number: US-ABBVIE-13P-163-1150498-00

PATIENT
  Age: 61 Year
  Sex: Female
  Weight: 113.5 kg

DRUGS (19)
  1. HUMIRA [Suspect]
     Indication: RHEUMATOID ARTHRITIS
     Route: 058
     Dates: start: 20100719, end: 201208
  2. HUMIRA [Suspect]
     Route: 058
     Dates: start: 201209, end: 201307
  3. HUMIRA [Suspect]
     Route: 058
     Dates: start: 201308, end: 201309
  4. METFORMIN [Suspect]
     Indication: DIABETES MELLITUS
     Dates: start: 2009, end: 201306
  5. PRILOSEC [Concomitant]
     Indication: GASTROOESOPHAGEAL REFLUX DISEASE
  6. ATENOLOL [Concomitant]
     Indication: BLOOD PRESSURE
  7. LISINOPRIL [Concomitant]
     Indication: BLOOD PRESSURE
  8. SPIRONOLACTONE [Concomitant]
     Indication: BLOOD PRESSURE
  9. POTASSIUM [Concomitant]
     Indication: PRODUCT USED FOR UNKNOWN INDICATION
  10. HYDROCHLOROTHIAZIDE [Concomitant]
     Indication: DIURETIC THERAPY
  11. FUROSEMIDE [Concomitant]
     Indication: DIURETIC THERAPY
  12. LEVEMIR [Concomitant]
     Indication: DIABETES MELLITUS
  13. NOVOLOG [Concomitant]
     Indication: DIABETES MELLITUS
  14. GLIPIZIDE [Concomitant]
     Indication: DIABETES MELLITUS
  15. PAROXETINE [Concomitant]
     Indication: DEPRESSION
  16. PREDNISONE [Concomitant]
     Indication: RHEUMATOID ARTHRITIS
  17. LEFLUNOMIDE [Concomitant]
     Indication: RHEUMATOID ARTHRITIS
  18. LEVOTHYROXINE [Concomitant]
     Indication: HYPOPARATHYROIDISM
  19. FERROUS SULFATE [Concomitant]
     Indication: IRON DEFICIENCY

REACTIONS (13)
  - Lung disorder [Not Recovered/Not Resolved]
  - Localised infection [Recovering/Resolving]
  - Sinusitis [Not Recovered/Not Resolved]
  - Oedema peripheral [Recovering/Resolving]
  - Erythema [Recovering/Resolving]
  - Localised infection [Recovering/Resolving]
  - Back pain [Not Recovered/Not Resolved]
  - Intervertebral disc protrusion [Not Recovered/Not Resolved]
  - Nausea [Recovered/Resolved]
  - Abdominal pain [Recovered/Resolved]
  - Chronic obstructive pulmonary disease [Not Recovered/Not Resolved]
  - Pain in extremity [Recovering/Resolving]
  - Pain in extremity [Recovering/Resolving]
